FAERS Safety Report 4696510-2 (Version None)
Quarter: 2005Q2

REPORT INFORMATION
  Report Type: 
  Country: None (occurrence: None)
  Receive Date: 20050620
  Receipt Date: 20050608
  Transmission Date: 20051028
  Serious: Yes (Hospitalization)
  Sender: FDA-Public Use
  Company Number: US014706

PATIENT
  Age: 50 Year
  Sex: Female
  Weight: 55.7924 kg

DRUGS (7)
  1. GABITRIL [Suspect]
     Indication: ANXIETY
     Dosage: 4 MG QD ORAL
     Route: 048
     Dates: start: 20041015, end: 20050207
  2. GABITRIL [Suspect]
     Indication: FIBROMYALGIA
     Dosage: 4 MG QD ORAL
     Route: 048
     Dates: start: 20041015, end: 20050207
  3. GABITRIL [Suspect]
     Indication: ANXIETY
     Dosage: 16 MG QD ORAL
     Route: 048
     Dates: start: 20050208, end: 20050213
  4. GABITRIL [Suspect]
     Indication: FIBROMYALGIA
     Dosage: 16 MG QD ORAL
     Route: 048
     Dates: start: 20050208, end: 20050213
  5. FLEXERIL [Concomitant]
  6. TRAZODONE [Concomitant]
  7. INDERAL [Concomitant]

REACTIONS (7)
  - ACUTE PSYCHOSIS [None]
  - AGGRESSION [None]
  - ANGER [None]
  - CONFUSIONAL STATE [None]
  - DRUG INTERACTION [None]
  - LOSS OF CONSCIOUSNESS [None]
  - SPEECH DISORDER [None]
